FAERS Safety Report 23197213 (Version 1)
Quarter: 2023Q4

REPORT INFORMATION
  Report Type: Spontaneous
  Country: JP (occurrence: US)
  Receive Date: 20231117
  Receipt Date: 20231117
  Transmission Date: 20240109
  Serious: No
  Sender: FDA-Public Use
  Company Number: JP-BAXTER-2023BAX035685

PATIENT

DRUGS (1)
  1. EXTRANEAL [Suspect]
     Active Substance: CALCIUM CHLORIDE\ICODEXTRIN\MAGNESIUM CHLORIDE\SODIUM CHLORIDE\SODIUM LACTATE
     Route: 033

REACTIONS (8)
  - Sluggishness [Unknown]
  - Product distribution issue [Unknown]
  - Product availability issue [Unknown]
  - Product dose omission issue [Unknown]
  - Weight increased [Unknown]
  - Swelling [Unknown]
  - Malaise [Unknown]
  - Oedema [Unknown]
